FAERS Safety Report 6020299-8 (Version None)
Quarter: 2008Q4

REPORT INFORMATION
  Report Type: 
  Country: None (occurrence: None)
  Receive Date: 20081223
  Receipt Date: 20081223
  Transmission Date: 20090506
  Serious: Yes (Other)
  Sender: FDA-Public Use
  Company Number: None

PATIENT
  Sex: Female
  Weight: 75.1 kg

DRUGS (2)
  1. OXALIPLATIN [Suspect]
     Indication: RECTAL CANCER METASTATIC
     Dosage: 180 MG Q21DAYS IV DRIP
     Route: 041
     Dates: start: 20081013, end: 20081215
  2. CAPECITABINE [Suspect]
     Dosage: 1500 MG BID X 14D Q21D PO
     Route: 048
     Dates: start: 20081013, end: 20081222

REACTIONS (2)
  - INFUSION RELATED REACTION [None]
  - TONGUE DISORDER [None]
